FAERS Safety Report 18219250 (Version 4)
Quarter: 2021Q3

REPORT INFORMATION
  Report Type: Spontaneous
  Country: US (occurrence: US)
  Receive Date: 20200901
  Receipt Date: 20210729
  Transmission Date: 20211014
  Serious: Yes (Other)
  Sender: FDA-Public Use
  Company Number: US-AMGEN-USASP2020137833

PATIENT
  Age: 81 Year
  Sex: Female

DRUGS (6)
  1. BABY ASPIRIN [Concomitant]
     Active Substance: ASPIRIN
     Dosage: UNK UNK, QD
  2. ZOFRAN [Concomitant]
     Active Substance: ONDANSETRON HYDROCHLORIDE
  3. PROLIA [Suspect]
     Active Substance: DENOSUMAB
     Indication: OSTEOPOROSIS POSTMENOPAUSAL
     Dosage: 60 MILLIGRAM, Q6MO
     Route: 065
  4. NEXIUM I.V. [Concomitant]
     Active Substance: ESOMEPRAZOLE SODIUM
     Dosage: UNK
  5. VITAMIN C [Concomitant]
     Active Substance: ASCORBIC ACID
     Dosage: UNK UNK, QD
  6. FLU [Concomitant]
     Active Substance: INFLUENZA VIRUS VACCINE

REACTIONS (7)
  - Fall [Unknown]
  - Ear pain [Unknown]
  - Iron deficiency [Unknown]
  - Tooth extraction [Unknown]
  - Contusion [Unknown]
  - Abdominal discomfort [Unknown]
  - Neurological procedural complication [Unknown]

NARRATIVE: CASE EVENT DATE: 2020
